FAERS Safety Report 10578479 (Version 1)
Quarter: 2014Q4

REPORT INFORMATION
  Report Type: Spontaneous
  Country: US (occurrence: None)
  Receive Date: 20141111
  Receipt Date: 20141111
  Transmission Date: 20150529
  Serious: Yes (Other)
  Sender: FDA-Public Use
  Company Number: None

PATIENT
  Age: 63 Year
  Sex: Female
  Weight: 113.4 kg

DRUGS (1)
  1. FARXIGA [Suspect]
     Active Substance: DAPAGLIFLOZIN PROPANEDIOL
     Indication: DIABETES MELLITUS
     Dosage: 1 PILL DAILY ONCE DAILY TAKEN BY MOUTH
     Route: 048
     Dates: start: 20140618, end: 20140801

REACTIONS (9)
  - Fungal infection [None]
  - Blister [None]
  - Staphylococcal infection [None]
  - Urticaria [None]
  - Pain [None]
  - Skin infection [None]
  - Discomfort [None]
  - Pruritus [None]
  - Vulvovaginal mycotic infection [None]

NARRATIVE: CASE EVENT DATE: 20140618
